FAERS Safety Report 13170114 (Version 1)
Quarter: 2017Q1

REPORT INFORMATION
  Report Type: Spontaneous
  Country: FR (occurrence: FR)
  Receive Date: 20170131
  Receipt Date: 20170131
  Transmission Date: 20170428
  Serious: Yes (Hospitalization)
  Sender: FDA-Public Use
  Company Number: FR-009507513-1701FRA011851

PATIENT
  Sex: Male

DRUGS (4)
  1. TEMODAL [Suspect]
     Active Substance: TEMOZOLOMIDE
     Dosage: UNK UNK, ONCE
     Route: 048
     Dates: start: 20160523, end: 20160524
  2. ONDANSETRON [Suspect]
     Active Substance: ONDANSETRON
     Indication: PROPHYLAXIS OF NAUSEA AND VOMITING
     Dosage: UNK
     Route: 048
     Dates: start: 20160321, end: 20160524
  3. TEMODAL [Suspect]
     Active Substance: TEMOZOLOMIDE
     Indication: GLIOBLASTOMA
     Dosage: 275 MG, QD
     Route: 048
     Dates: start: 20160321, end: 20160325
  4. TEMODAL [Suspect]
     Active Substance: TEMOZOLOMIDE
     Dosage: UNK UNK, QD
     Route: 048
     Dates: start: 20160418, end: 20160422

REACTIONS (1)
  - Colitis ischaemic [Recovered/Resolved]
